FAERS Safety Report 6442510-1 (Version None)
Quarter: 2009Q4

REPORT INFORMATION
  Report Type: 
  Country: None (occurrence: None)
  Receive Date: 20091117
  Receipt Date: 20091105
  Transmission Date: 20100525
  Serious: Yes (Hospitalization, Other)
  Sender: FDA-Public Use
  Company Number: US-ASTRAZENECA-2007UW04112

PATIENT
  Age: 41 Year
  Sex: Male

DRUGS (32)
  1. SEROQUEL [Suspect]
     Indication: BIPOLAR DISORDER
     Dosage: 300 MG -600 MG,25-600 MG AT NIGHT
     Route: 048
     Dates: start: 20040315
  2. SEROQUEL [Suspect]
     Indication: INSOMNIA
     Dosage: 300 MG -600 MG,25-600 MG AT NIGHT
     Route: 048
     Dates: start: 20040315
  3. SEROQUEL [Suspect]
     Indication: DELUSION
     Dosage: 300 MG -600 MG,25-600 MG AT NIGHT
     Route: 048
     Dates: start: 20040315
  4. SEROQUEL [Suspect]
     Route: 048
     Dates: start: 20040506
  5. SEROQUEL [Suspect]
     Route: 048
     Dates: start: 20040506
  6. SEROQUEL [Suspect]
     Route: 048
     Dates: start: 20040506
  7. RISPERDAL [Suspect]
     Indication: BIPOLAR DISORDER
     Dosage: 4 TO 6 MG
     Dates: start: 20020108, end: 20031012
  8. ZYPREXA [Suspect]
     Indication: BIPOLAR DISORDER
     Dosage: 10-20 MG
     Dates: start: 20011018, end: 20011218
  9. ZYPREXA [Suspect]
     Dates: start: 20031108, end: 20040402
  10. ZYPREXA [Suspect]
     Dosage: 15-30 MG
     Route: 048
     Dates: start: 20031108, end: 20040414
  11. GEODON [Concomitant]
     Dosage: 40-60 MG
     Dates: start: 20040501
  12. HALDOL [Concomitant]
     Dates: start: 20040901
  13. HALDOL [Concomitant]
     Dates: start: 20050125
  14. DEPAKOTE [Concomitant]
     Dosage: 1000-2000 MG
     Dates: start: 20041201, end: 20050316
  15. TOPAMAX [Concomitant]
     Indication: DEPRESSION
     Dosage: 25-200 MG
     Dates: start: 20040314
  16. TOPAMAX [Concomitant]
     Indication: MIGRAINE
     Dosage: 25-200 MG
     Dates: start: 20040314
  17. BENICAR HCT [Concomitant]
     Indication: HYPERTENSION
     Dates: start: 20070321
  18. ZOLOFT [Concomitant]
     Indication: DEPRESSION
     Dosage: 25-100 MG
     Dates: start: 20050516
  19. METOPROLOL [Concomitant]
     Dosage: 12.5-25 MG
     Route: 048
     Dates: start: 20010720
  20. METFORMIN HYDROCHLORIDE [Concomitant]
     Dates: start: 20070321
  21. KLONOPIN [Concomitant]
     Indication: ANXIETY
     Route: 048
  22. COGENTIN [Concomitant]
     Route: 048
     Dates: start: 20030820
  23. PROZAC [Concomitant]
     Dates: start: 20040309
  24. TEMAZEPAM [Concomitant]
     Dates: start: 20030617
  25. PROTONIX [Concomitant]
  26. XANAX [Concomitant]
     Indication: ANXIETY
     Dosage: 0.5-1 MG
     Dates: start: 20040309
  27. XANAX [Concomitant]
     Indication: PANIC ATTACK
     Dosage: 0.5-1 MG
     Dates: start: 20040309
  28. NEURONTIN [Concomitant]
     Dosage: 100-300 MG
     Dates: start: 20031128
  29. BENICAR [Concomitant]
  30. METFORMIN HCL [Concomitant]
  31. ASPIRIN [Concomitant]
     Dates: start: 20090101
  32. LIPITOR [Concomitant]
     Dates: start: 20090101

REACTIONS (6)
  - ARTHRALGIA [None]
  - CHEST PAIN [None]
  - DEPRESSIVE SYMPTOM [None]
  - SUICIDAL IDEATION [None]
  - SUICIDE ATTEMPT [None]
  - TYPE 2 DIABETES MELLITUS [None]
